FAERS Safety Report 15471930 (Version 7)
Quarter: 2019Q1

REPORT INFORMATION
  Report Type: Spontaneous
  Country: JP (occurrence: JP)
  Receive Date: 20181008
  Receipt Date: 20190122
  Transmission Date: 20190417
  Serious: Yes (Other)
  Sender: FDA-Public Use
  Company Number: JP-ROCHE-2193832

PATIENT
  Age: 66 Year
  Sex: Male
  Weight: 60 kg

DRUGS (15)
  1. ACTEMRA [Suspect]
     Active Substance: TOCILIZUMAB
     Route: 041
     Dates: start: 20171102, end: 20180123
  2. VALACICLOVIR HYDROCHLORIDE [Concomitant]
     Active Substance: VALACYCLOVIR HYDROCHLORIDE
     Dosage: DOSAGE IS UNCERTAIN.
     Route: 065
  3. ACTEMRA [Suspect]
     Active Substance: TOCILIZUMAB
     Route: 041
     Dates: start: 20180220, end: 20180830
  4. DAIKENCHUTO [Concomitant]
     Active Substance: HERBALS
     Dosage: DOSAGE IS UNCERTAIN.
     Route: 065
  5. ACTEMRA [Suspect]
     Active Substance: TOCILIZUMAB
     Route: 041
     Dates: start: 20180921, end: 20180921
  6. ACTEMRA [Suspect]
     Active Substance: TOCILIZUMAB
     Route: 041
     Dates: start: 20180910, end: 20180910
  7. BACTRAMIN [Concomitant]
     Active Substance: SULFAMETHOXAZOLE\TRIMETHOPRIM
     Dosage: DOSAGE IS UNCERTAIN.
     Route: 065
     Dates: start: 201709
  8. ACTEMRA [Suspect]
     Active Substance: TOCILIZUMAB
     Route: 041
     Dates: start: 20180206, end: 20180206
  9. ACTEMRA [Suspect]
     Active Substance: TOCILIZUMAB
     Indication: CASTLEMAN^S DISEASE
     Route: 041
     Dates: start: 20170922, end: 20171020
  10. ISCOTIN [Concomitant]
     Active Substance: ISONIAZID
     Dosage: DOSAGE IS UNCERTAIN.
     Route: 065
     Dates: start: 201709
  11. LANSOPRAZOLE. [Concomitant]
     Active Substance: LANSOPRAZOLE
     Dosage: DOSAGE IS UNCERTAIN.
     Route: 065
     Dates: start: 201709
  12. PYDOXAL [Concomitant]
     Active Substance: PYRIDOXAL
     Dosage: DOSAGE IS UNCERTAIN.
     Route: 065
     Dates: start: 201709
  13. AMLODIPINE BESILATE [Concomitant]
     Active Substance: AMLODIPINE BESYLATE
     Dosage: DOSAGE IS UNCERTAIN.
     Route: 065
  14. URSODEOXYCHOLIC ACID [Concomitant]
     Active Substance: URSODIOL
     Dosage: DOSAGE IS UNCERTAIN.
     Route: 065
  15. FEBURIC [Concomitant]
     Active Substance: FEBUXOSTAT
     Dosage: DOSAGE IS UNCERTAIN.
     Route: 065
     Dates: start: 201709

REACTIONS (10)
  - Renal impairment [Unknown]
  - Drug ineffective [Unknown]
  - Oxygen saturation decreased [Unknown]
  - Drug specific antibody present [Unknown]
  - Off label use [Unknown]
  - Therapeutic response decreased [Not Recovered/Not Resolved]
  - Infusion related reaction [Recovered/Resolved]
  - Platelet count decreased [Unknown]
  - Chills [Unknown]
  - Product used for unknown indication [Unknown]

NARRATIVE: CASE EVENT DATE: 20171228
